FAERS Safety Report 6725408-0 (Version None)
Quarter: 2010Q2

REPORT INFORMATION
  Report Type: 
  Country: None (occurrence: None)
  Receive Date: 20100513
  Receipt Date: 20100513
  Transmission Date: 20101027
  Serious: Yes (Death)
  Sender: FDA-Public Use
  Company Number: None

PATIENT
  Sex: Male
  Weight: 92.5338 kg

DRUGS (2)
  1. HEPARIN [Suspect]
     Dates: start: 20070928, end: 20071002
  2. TOSHIBA [Concomitant]

REACTIONS (4)
  - APHASIA [None]
  - CEREBELLAR HAEMORRHAGE [None]
  - DISEASE COMPLICATION [None]
  - TRANSIENT ISCHAEMIC ATTACK [None]
